FAERS Safety Report 18776130 (Version 4)
Quarter: 2022Q4

REPORT INFORMATION
  Report Type: Spontaneous
  Country: CA (occurrence: CA)
  Receive Date: 20210122
  Receipt Date: 20221129
  Transmission Date: 20230113
  Serious: Yes (Other)
  Sender: FDA-Public Use
  Company Number: CA-PFIZER INC-2021039725

PATIENT
  Age: 58 Year
  Sex: Female

DRUGS (8)
  1. CARBOPLATIN [Suspect]
     Active Substance: CARBOPLATIN
     Indication: Non-small cell lung cancer metastatic
     Dosage: UNK
     Route: 065
  2. PEMETREXED [Suspect]
     Active Substance: PEMETREXED
     Indication: Non-small cell lung cancer metastatic
     Dosage: UNK
     Route: 065
  3. PEMETREXED [Suspect]
     Active Substance: PEMETREXED
     Dosage: FOLLOWED BY PEMETREXED MAINTENANCE
  4. GEMCITABINE HYDROCHLORIDE [Suspect]
     Active Substance: GEMCITABINE HYDROCHLORIDE
     Indication: Non-small cell lung cancer metastatic
     Dosage: UNK
     Route: 065
  5. VINORELBINE TARTRATE [Suspect]
     Active Substance: VINORELBINE TARTRATE
     Indication: Non-small cell lung cancer metastatic
     Dosage: UNK
     Route: 065
  6. OSIMERTINIB [Suspect]
     Active Substance: OSIMERTINIB
     Indication: Non-small cell lung cancer metastatic
     Dosage: UNK (AFTER IDENTIFICATION OF EGFR T790M RESISTANCE MUTATION)
  7. PEMBROLIZUMAB [Suspect]
     Active Substance: PEMBROLIZUMAB
     Indication: Non-small cell lung cancer metastatic
     Dosage: UNK
  8. TAXOTERE [Suspect]
     Active Substance: DOCETAXEL
     Indication: Non-small cell lung cancer metastatic
     Dosage: UNK

REACTIONS (2)
  - Pulmonary embolism [Unknown]
  - Neoplasm progression [Unknown]
